FAERS Safety Report 19966469 (Version 3)
Quarter: 2021Q4

REPORT INFORMATION
  Report Type: Report from Study
  Country: US (occurrence: US)
  Receive Date: 20211018
  Receipt Date: 20211111
  Transmission Date: 20220303
  Serious: Yes (Hospitalization, Other)
  Sender: FDA-Public Use
  Company Number: US-GILEAD-2021-0553009

PATIENT
  Sex: Male

DRUGS (3)
  1. AMBRISENTAN [Suspect]
     Active Substance: AMBRISENTAN
     Indication: Pulmonary arterial hypertension
     Dosage: 5 MG, QD
     Route: 065
     Dates: start: 20210221
  2. ELIQUIS [Concomitant]
     Active Substance: APIXABAN
  3. TADALAFIL [Concomitant]
     Active Substance: TADALAFIL

REACTIONS (4)
  - Gastrointestinal haemorrhage [Recovered/Resolved]
  - Pneumonia [Recovering/Resolving]
  - Renal disorder [Recovering/Resolving]
  - Diarrhoea [Recovering/Resolving]
